FAERS Safety Report 26083760 (Version 1)
Quarter: 2025Q4

REPORT INFORMATION
  Report Type: Report from Study
  Country: US (occurrence: US)
  Receive Date: 20251124
  Receipt Date: 20251124
  Transmission Date: 20260118
  Serious: No
  Sender: AGIOS PHARMACEUTICALS
  Company Number: US-AGIOS-2511US04564

PATIENT
  Sex: Male

DRUGS (1)
  1. MITAPIVAT [Suspect]
     Active Substance: MITAPIVAT
     Indication: Haemolytic anaemia
     Dosage: 5 MILLIGRAM, BID
     Route: 048
     Dates: start: 20250801

REACTIONS (2)
  - Product dose omission issue [Unknown]
  - Off label use [Unknown]
